FAERS Safety Report 16797233 (Version 2)
Quarter: 2019Q3

REPORT INFORMATION
  Report Type: Spontaneous
  Country: US (occurrence: US)
  Receive Date: 20190912
  Receipt Date: 20190924
  Transmission Date: 20191005
  Serious: Yes (Other)
  Sender: FDA-Public Use
  Company Number: US-ASTRAZENECA-2019SE09271

PATIENT
  Age: 15558 Day
  Sex: Male

DRUGS (10)
  1. BACITRACIN. [Concomitant]
     Active Substance: BACITRACIN
     Indication: ERYTHEMA
  2. CLONIDINE. [Concomitant]
     Active Substance: CLONIDINE
     Indication: HYPERTENSION
  3. PRILOSEC OTC [Suspect]
     Active Substance: OMEPRAZOLE MAGNESIUM
     Route: 048
  4. LOPERAMIDE [Concomitant]
     Active Substance: LOPERAMIDE
     Indication: DIARRHOEA
  5. PRILOSEC [Suspect]
     Active Substance: OMEPRAZOLE MAGNESIUM
     Route: 048
  6. VITAMIN B12 [Concomitant]
     Active Substance: CYANOCOBALAMIN
  7. BENADRYL [Concomitant]
     Active Substance: DIPHENHYDRAMINE HYDROCHLORIDE
  8. ACETAMINOPHEN. [Concomitant]
     Active Substance: ACETAMINOPHEN
     Indication: HEADACHE
  9. PHOSLO [Concomitant]
     Active Substance: CALCIUM ACETATE
  10. TUMS [Concomitant]
     Active Substance: CALCIUM CARBONATE
     Indication: DYSPEPSIA

REACTIONS (7)
  - End stage renal disease [Unknown]
  - Rebound acid hypersecretion [Unknown]
  - Renal failure [Unknown]
  - Nephrogenic anaemia [Unknown]
  - Renal injury [Unknown]
  - Chronic kidney disease [Unknown]
  - Secondary hyperthyroidism [Unknown]

NARRATIVE: CASE EVENT DATE: 20170328
